FAERS Safety Report 9683538 (Version 2)
Quarter: 2014Q1

REPORT INFORMATION
  Report Type: Report from Study
  Country: JP (occurrence: JP)
  Receive Date: 20131112
  Receipt Date: 20140123
  Transmission Date: 20141002
  Serious: Yes (Other)
  Sender: FDA-Public Use
  Company Number: JP-GILEAD-2013-0087460

PATIENT
  Age: 57 Year
  Sex: Female
  Weight: 39 kg

DRUGS (14)
  1. AMBRISENTAN [Suspect]
     Indication: PULMONARY HYPERTENSION
     Dosage: 5 MG, QD
     Route: 048
     Dates: start: 20101129
  2. AMBRISENTAN [Suspect]
     Indication: CONNECTIVE TISSUE DISORDER
  3. REVATIO [Concomitant]
     Route: 048
  4. REVATIO [Concomitant]
     Route: 048
  5. TRACLEER                           /01587701/ [Concomitant]
     Route: 048
  6. BERAPROST SODIUM [Concomitant]
     Route: 048
  7. BERAPROST SODIUM [Concomitant]
     Route: 048
  8. WARFARIN [Concomitant]
     Route: 048
  9. WARFARIN [Concomitant]
     Route: 048
  10. FRUSEMIDE                          /00032601/ [Concomitant]
     Route: 048
     Dates: start: 20110209
  11. FRUSEMIDE                          /00032601/ [Concomitant]
     Dosage: 20 MG, UNK
  12. ALDACTONE A [Concomitant]
     Route: 048
     Dates: start: 20110209
  13. ALDACTONE A [Concomitant]
     Dosage: 25 MG, QD
  14. VASOLAN                            /00014302/ [Concomitant]
     Dosage: 20 MG, QD

REACTIONS (4)
  - Renal impairment [Not Recovered/Not Resolved]
  - Cardiac failure [Recovered/Resolved]
  - Renal impairment [Recovered/Resolved]
  - Fluid retention [Recovered/Resolved]
